FAERS Safety Report 10097226 (Version 1)
Quarter: 2014Q2

REPORT INFORMATION
  Report Type: Spontaneous
  Country: JP (occurrence: JP)
  Receive Date: 20140422
  Receipt Date: 20140422
  Transmission Date: 20141212
  Serious: Yes (Other)
  Sender: FDA-Public Use
  Company Number: JP-US-EMD SERONO, INC.-7282326

PATIENT
  Age: 43 Year
  Sex: Male

DRUGS (3)
  1. SAIZEN [Suspect]
     Indication: DWARFISM
     Route: 065
  2. UNKNOWNDRUG [Concomitant]
     Indication: HYPOTHYROIDISM
     Route: 065
  3. UNKNOWNDRUG [Concomitant]
     Indication: HYPOGONADISM MALE
     Route: 065

REACTIONS (3)
  - Rhabdomyolysis [Recovering/Resolving]
  - Adrenal insufficiency [Unknown]
  - Hyponatraemia [Recovering/Resolving]
